FAERS Safety Report 24990079 (Version 1)
Quarter: 2025Q1

REPORT INFORMATION
  Report Type: Spontaneous
  Country: CA (occurrence: None)
  Receive Date: 20250220
  Receipt Date: 20250220
  Transmission Date: 20250409
  Serious: Yes (Other)
  Sender: ALEXION PHARMACEUTICALS
  Company Number: CA-AstraZeneca-2009UW01458

PATIENT
  Age: 52 Year
  Weight: 47.6 kg

DRUGS (4)
  1. NEXIUM [Suspect]
     Active Substance: ESOMEPRAZOLE MAGNESIUM
  2. CALCIUM [Concomitant]
     Active Substance: CALCIUM
  3. CLONAZEPAM [Concomitant]
     Active Substance: CLONAZEPAM
  4. ESTRACE [Concomitant]
     Active Substance: ESTRADIOL

REACTIONS (5)
  - Anaemia [Unknown]
  - Cough [Unknown]
  - Dyspepsia [Unknown]
  - Dyspnoea [Unknown]
  - Tinnitus [Unknown]
